FAERS Safety Report 23150011 (Version 1)
Quarter: 2023Q4

REPORT INFORMATION
  Report Type: Spontaneous
  Country: US (occurrence: US)
  Receive Date: 20231106
  Receipt Date: 20231106
  Transmission Date: 20240110
  Serious: No
  Sender: FDA-Public Use
  Company Number: US-PFIZER INC-202300354664

PATIENT
  Age: 47 Year
  Sex: Male

DRUGS (2)
  1. CIBINQO [Suspect]
     Active Substance: ABROCITINIB
     Indication: Dermatitis atopic
     Dosage: 100 MG, 2X/DAY
  2. CIBINQO [Suspect]
     Active Substance: ABROCITINIB
     Dosage: 100 MG, 1X/DAY (1 TABLET DAILY, #30, 30 DAYS)
     Dates: start: 20230817

REACTIONS (4)
  - Therapeutic product effect incomplete [Unknown]
  - Lichenification [Unknown]
  - Condition aggravated [Unknown]
  - Off label use [Unknown]
